FAERS Safety Report 7483861-1 (Version None)
Quarter: 2011Q2

REPORT INFORMATION
  Report Type: 
  Country: None (occurrence: None)
  Receive Date: 20110517
  Receipt Date: 20110428
  Transmission Date: 20111010
  Serious: No
  Sender: FDA-Public Use
  Company Number: US-B.I. PHARMACEUTICALS,INC./RIDGEFIELD-2011-BP-02692BP

PATIENT
  Sex: Female

DRUGS (13)
  1. METOPROLOL SUCCINATE [Concomitant]
     Indication: ATRIAL FIBRILLATION
  2. FLURAZEPAM [Concomitant]
     Indication: INSOMNIA
  3. PRADAXA [Suspect]
     Indication: ATRIAL FIBRILLATION
     Dosage: 300 MG
     Route: 048
     Dates: start: 20110111, end: 20110125
  4. B1- VITAMIN [Concomitant]
     Indication: PROPHYLAXIS
  5. POTASSIUM-CL [Concomitant]
     Indication: PROPHYLAXIS
     Dosage: 20 MG
  6. CITALOPRAM HYDROBROMIDE [Concomitant]
     Indication: ANXIETY
     Dosage: 20 MG
  7. DILANTIN [Concomitant]
     Indication: EPILEPSY
  8. TIKOSYN [Concomitant]
     Indication: ATRIAL FIBRILLATION
  9. CALCITONIN [Concomitant]
  10. PRADAXA [Suspect]
     Indication: ANTICOAGULANT THERAPY
  11. FOLIC ACID [Concomitant]
     Indication: PROPHYLAXIS
     Dosage: 1 MG
  12. D-3 [Concomitant]
  13. INHALER [Concomitant]

REACTIONS (2)
  - MELAENA [None]
  - ASTHENIA [None]
